FAERS Safety Report 17056233 (Version 3)
Quarter: 2020Q2

REPORT INFORMATION
  Report Type: Report from Study
  Country: US (occurrence: US)
  Receive Date: 20191121
  Receipt Date: 20200508
  Transmission Date: 20200713
  Serious: No
  Sender: FDA-Public Use
  Company Number: NVSC2019US042999

PATIENT
  Age: 38 Year
  Sex: Male

DRUGS (3)
  1. ENTRESTO [Suspect]
     Active Substance: SACUBITRIL\VALSARTAN
     Indication: CARDIAC FAILURE CHRONIC
     Dosage: 100 MG (49/51 MG), BID
     Route: 065
     Dates: start: 20200406
  2. ENTRESTO [Suspect]
     Active Substance: SACUBITRIL\VALSARTAN
     Indication: CARDIOMYOPATHY
     Dosage: UNK
     Route: 048
     Dates: start: 20191015
  3. ENTRESTO [Suspect]
     Active Substance: SACUBITRIL\VALSARTAN
     Indication: CARDIOMYOPATHY
     Dosage: 24 MG, BID
     Route: 048
     Dates: start: 20191104

REACTIONS (9)
  - Daydreaming [Not Recovered/Not Resolved]
  - Blood potassium decreased [Unknown]
  - Product use in unapproved indication [Unknown]
  - Aphasia [Not Recovered/Not Resolved]
  - Memory impairment [Unknown]
  - Decreased activity [Unknown]
  - Ejection fraction abnormal [Unknown]
  - Concomitant disease aggravated [Not Recovered/Not Resolved]
  - Product dose omission [Recovering/Resolving]

NARRATIVE: CASE EVENT DATE: 20191015
